FAERS Safety Report 12246138 (Version 4)
Quarter: 2017Q1

REPORT INFORMATION
  Report Type: Report from Study
  Country: AU (occurrence: AU)
  Receive Date: 20160407
  Receipt Date: 20170314
  Transmission Date: 20170428
  Serious: Yes (Death, Hospitalization, Other)
  Sender: FDA-Public Use
  Company Number: AU-REGENERON PHARMACEUTICALS, INC.-2016-15096

PATIENT

DRUGS (1)
  1. EYLEA [Suspect]
     Active Substance: AFLIBERCEPT
     Indication: NEOVASCULAR AGE-RELATED MACULAR DEGENERATION
     Dosage: 2 MG, 4-6 WEEKLY
     Route: 031
     Dates: start: 201302

REACTIONS (5)
  - Death [Fatal]
  - Platelet count decreased [Unknown]
  - Product use issue [Unknown]
  - Pneumonia [Unknown]
  - Myeloid leukaemia [Unknown]

NARRATIVE: CASE EVENT DATE: 20151226
